FAERS Safety Report 18534632 (Version 4)
Quarter: 2021Q3

REPORT INFORMATION
  Report Type: Spontaneous
  Country: CA (occurrence: CA)
  Receive Date: 20201123
  Receipt Date: 20210728
  Transmission Date: 20211014
  Serious: Yes (Death, Life-Threatening, Hospitalization)
  Sender: FDA-Public Use
  Company Number: CA-PFIZER INC-2019545853

PATIENT
  Age: 83 Year
  Sex: Female

DRUGS (3)
  1. BOSULIF [Suspect]
     Active Substance: BOSUTINIB MONOHYDRATE
     Dosage: UNK
     Dates: start: 20201118
  2. BOSULIF [Suspect]
     Active Substance: BOSUTINIB MONOHYDRATE
     Indication: CHRONIC MYELOID LEUKAEMIA
     Dosage: 200 MG, 1X/DAY
     Dates: start: 20191219, end: 20191227
  3. BOSULIF [Suspect]
     Active Substance: BOSUTINIB MONOHYDRATE
     Dosage: UNK
     Route: 048
     Dates: start: 20200123, end: 20210422

REACTIONS (3)
  - Respiratory failure [Fatal]
  - COVID-19 [Unknown]
  - Pneumonia [Fatal]

NARRATIVE: CASE EVENT DATE: 20210422
